FAERS Safety Report 4590360-3 (Version None)
Quarter: 2005Q1

REPORT INFORMATION
  Report Type: 
  Country: None (occurrence: None)
  Receive Date: 20050217
  Receipt Date: 20050210
  Transmission Date: 20050727
  Serious: Yes (Other)
  Sender: FDA-Public Use
  Company Number: K200401852

PATIENT
  Age: 53 Year
  Sex: Female

DRUGS (8)
  1. SONATA [Suspect]
     Indication: INSOMNIA
     Dosage: 10 MG, QD, ORAL
     Route: 048
     Dates: start: 20040722, end: 20041007
  2. ZOPLICONE (ZOPICLONE) 15MG [Suspect]
     Indication: INSOMNIA
     Dosage: 15 MG, QD, ORAL
     Route: 048
     Dates: end: 20040722
  3. OLANZAPINE [Concomitant]
  4. LORAZEPAM [Concomitant]
  5. VALPROATE SODIUM [Concomitant]
  6. MIRTAZAPINE [Concomitant]
  7. GLIMEPIRIDE [Concomitant]
  8. CARBAMAZEPINE [Concomitant]

REACTIONS (6)
  - DELUSION [None]
  - DRUG WITHDRAWAL SYNDROME [None]
  - HALLUCINATION, VISUAL [None]
  - INTENTIONAL MISUSE [None]
  - MEDICATION ERROR [None]
  - PARANOIA [None]
